FAERS Safety Report 7397289-6 (Version None)
Quarter: 2011Q2

REPORT INFORMATION
  Report Type: 
  Country: None (occurrence: None)
  Receive Date: 20110406
  Receipt Date: 20110324
  Transmission Date: 20111010
  Serious: Yes (Other)
  Sender: FDA-Public Use
  Company Number: FR-PFIZER INC-2011064087

PATIENT
  Age: 32 Year
  Sex: Male

DRUGS (5)
  1. METHYLPREDNISOLONE [Suspect]
     Indication: SPONDYLITIS
     Dosage: UNK
  2. ETANERCEPT [Suspect]
     Indication: SPONDYLITIS
     Dosage: UNK
  3. ADALIMUMAB [Suspect]
     Indication: SPONDYLITIS
     Dosage: UNK
  4. INFLIXIMAB [Suspect]
     Indication: SPONDYLITIS
     Dosage: UNK
  5. PAMIDRONATE DISODIUM [Suspect]
     Indication: SPONDYLITIS
     Dosage: UNK

REACTIONS (2)
  - UVEITIS [None]
  - DRUG INEFFECTIVE [None]
